FAERS Safety Report 12393455 (Version 1)
Quarter: 2016Q2

REPORT INFORMATION
  Report Type: Spontaneous
  Country: US (occurrence: US)
  Receive Date: 20160523
  Receipt Date: 20160523
  Transmission Date: 20160815
  Serious: Yes (Other)
  Sender: FDA-Public Use
  Company Number: US-GLAXOSMITHKLINE-US2016GSK071604

PATIENT
  Age: 72 Year
  Sex: Male

DRUGS (1)
  1. TANZEUM [Suspect]
     Active Substance: ALBIGLUTIDE
     Indication: TYPE 2 DIABETES MELLITUS
     Dosage: 50 MG, WE
     Dates: start: 201602

REACTIONS (4)
  - Device use error [Unknown]
  - Injection site nodule [Unknown]
  - Drug dose omission [Unknown]
  - Hernia repair [Unknown]

NARRATIVE: CASE EVENT DATE: 201602
